FAERS Safety Report 24269899 (Version 2)
Quarter: 2024Q3

REPORT INFORMATION
  Report Type: Report from Study
  Country: CO (occurrence: CO)
  Receive Date: 20240830
  Receipt Date: 20240903
  Transmission Date: 20241016
  Serious: Yes (Hospitalization, Other)
  Sender: BAYER
  Company Number: CO-BAYER-2024A122017

PATIENT
  Age: 73 Year
  Sex: Male

DRUGS (2)
  1. NUBEQA [Suspect]
     Active Substance: DAROLUTAMIDE
     Indication: Hormone-dependent prostate cancer
     Dosage: 600 MG, BID
     Dates: start: 20230519, end: 20240818
  2. SCOPOLAMINE [Concomitant]
     Active Substance: SCOPOLAMINE
     Dosage: UNK

REACTIONS (5)
  - Abdominal distension [Not Recovered/Not Resolved]
  - Inflammation [Not Recovered/Not Resolved]
  - Orchitis noninfective [Not Recovered/Not Resolved]
  - Lung disorder [Not Recovered/Not Resolved]
  - Intra-abdominal fluid collection [None]

NARRATIVE: CASE EVENT DATE: 20240819
